FAERS Safety Report 7770921-0 (Version None)
Quarter: 2011Q3

REPORT INFORMATION
  Report Type: 
  Country: None (occurrence: None)
  Receive Date: 20110922
  Receipt Date: 20110322
  Transmission Date: 20111222
  Serious: No
  Sender: FDA-Public Use
  Company Number: US-ASTRAZENECA-2011SE16024

PATIENT
  Age: 67 Year
  Sex: Female
  Weight: 83.5 kg

DRUGS (8)
  1. SIMVASTATIN [Concomitant]
  2. DIOVAN [Concomitant]
  3. SEROQUEL [Suspect]
     Indication: NERVOUSNESS
     Route: 048
  4. ASPIRIN [Concomitant]
  5. PLAVIX [Concomitant]
  6. ZETIA [Concomitant]
  7. AMLODAPINE DESYLATE [Concomitant]
  8. METFORMIN [Concomitant]

REACTIONS (2)
  - BLOOD GLUCOSE INCREASED [None]
  - OFF LABEL USE [None]
